FAERS Safety Report 11953840 (Version 5)
Quarter: 2016Q2

REPORT INFORMATION
  Report Type: Spontaneous
  Country: US (occurrence: US)
  Receive Date: 20160126
  Receipt Date: 20160404
  Transmission Date: 20160815
  Serious: Yes (Hospitalization)
  Sender: FDA-Public Use
  Company Number: US-PFIZER INC-2016040187

PATIENT
  Age: 69 Year
  Sex: Male
  Weight: 69 kg

DRUGS (22)
  1. FINASTERIDE. [Concomitant]
     Active Substance: FINASTERIDE
     Dosage: 5 MG, 1X/DAY
  2. FISH OIL [Concomitant]
     Active Substance: FISH OIL
     Dosage: 1000 MG, 4X/DAY
  3. HYDRALAZINE [Concomitant]
     Active Substance: HYDRALAZINE HYDROCHLORIDE
     Dosage: 50 MG, 3X/DAY
  4. PANTOPRAZOLE [Concomitant]
     Active Substance: PANTOPRAZOLE SODIUM
     Dosage: 40 MG, 1X/DAY
  5. IRON [Concomitant]
     Active Substance: IRON
     Dosage: TWO TABLETS A DAY
  6. DILTIAZEM HR ER [Concomitant]
     Dosage: 240 MG, 1X/DAY
  7. SINGULAIR [Concomitant]
     Active Substance: MONTELUKAST SODIUM
     Dosage: 10 MG, 1X/DAY
  8. NEVANAC [Concomitant]
     Active Substance: NEPAFENAC
     Dosage: 0.10%,THREE TIMES IN HIS LEFT EYE
  9. LYRICA [Suspect]
     Active Substance: PREGABALIN
     Indication: PAIN IN EXTREMITY
  10. ALFUZOSIN HCL ER [Concomitant]
     Dosage: 10 MG,ONE TIME IN NIGHT.
  11. XOPENEX HFA [Concomitant]
     Active Substance: LEVALBUTEROL TARTRATE
     Dosage: 45 UG, AS NEEDED
  12. LORATADINE. [Concomitant]
     Active Substance: LORATADINE
     Dosage: 10 MG, 1X/DAY
  13. WELCHOL [Concomitant]
     Active Substance: COLESEVELAM HYDROCHLORIDE
     Dosage: 626 MG, SIX TIMES A DAY
  14. VITAMIN D3 [Concomitant]
     Active Substance: CHOLECALCIFEROL
     Dosage: 1000 IU, TWO PER DAY
  15. PLAVIX [Concomitant]
     Active Substance: CLOPIDOGREL BISULFATE
     Dosage: 75 MG, ONE TIME A DAY
  16. LYRICA [Suspect]
     Active Substance: PREGABALIN
     Indication: DIABETIC NEPHROPATHY
     Dosage: 75 MG, 1X/DAY AT BED TIME
     Route: 048
     Dates: start: 20151103, end: 20160123
  17. ONGLYZA [Concomitant]
     Active Substance: SAXAGLIPTIN HYDROCHLORIDE
     Dosage: 2.5 MG, 1X/DAY
  18. BABY ASPIRIN [Concomitant]
     Active Substance: ASPIRIN
     Dosage: 81 MG, ONE TIME IN NIGHT
  19. CLONIDINE HCL [Concomitant]
     Active Substance: CLONIDINE HYDROCHLORIDE
     Dosage: 0.1 MG, 3X/DAY
  20. LISINOPRIL. [Concomitant]
     Active Substance: LISINOPRIL
     Dosage: 20 MG, 1X/DAY
  21. SYMBICORT [Concomitant]
     Active Substance: BUDESONIDE\FORMOTEROL FUMARATE DIHYDRATE
     Dosage: [BUDESONIDE 160]/[FORMOTEROL FUMARATE 4.5] TWO PUFFS TWICE DAILY
  22. ZETIA [Concomitant]
     Active Substance: EZETIMIBE
     Dosage: 10 MG, 1X/DAY

REACTIONS (6)
  - Condition aggravated [Recovered/Resolved]
  - Dyspnoea [Recovered/Resolved]
  - Asthma [Recovered/Resolved]
  - Throat irritation [Recovered/Resolved]
  - Drug dose omission [Recovered/Resolved]
  - Cough [Recovered/Resolved]
